FAERS Safety Report 15587794 (Version 1)
Quarter: 2018Q4

REPORT INFORMATION
  Report Type: Spontaneous
  Country: US (occurrence: US)
  Receive Date: 20181101
  Receipt Date: 20181101
  Transmission Date: 20190205
  Serious: No
  Sender: FDA-Public Use
  Company Number: None

PATIENT
  Age: 6 Year
  Sex: Female

DRUGS (1)
  1. LUPRON [Suspect]
     Active Substance: LEUPROLIDE ACETATE
     Dosage: ?          OTHER ROUTE:INJECTION?

REACTIONS (1)
  - Gait disturbance [None]
